FAERS Safety Report 8389672 (Version 4)
Quarter: 2013Q2

REPORT INFORMATION
  Report Type: Report from Study
  Country: US (occurrence: US)
  Receive Date: 20120203
  Receipt Date: 20130620
  Transmission Date: 20140414
  Serious: Yes (Death, Hospitalization)
  Sender: FDA-Public Use
  Company Number: US-ELI_LILLY_AND_COMPANY-US201201007799

PATIENT
  Age: 84 Year
  Sex: Male

DRUGS (24)
  1. TERIPARATIDE [Suspect]
     Dosage: 20 UG, QD
     Dates: start: 201108
  2. TERIPARATIDE [Suspect]
     Dosage: 20 UG, QD
     Dates: start: 201108
  3. TERIPARATIDE [Suspect]
     Dosage: 20 UG, QD
     Dates: end: 20121121
  4. ADVAIR DISKUS [Concomitant]
     Dosage: UNK, BID
  5. ALBUTEROL SULFATE [Concomitant]
  6. ALTACE [Concomitant]
     Dosage: 2.5 MG, BID
     Route: 048
  7. ASPIRIN [Concomitant]
     Dosage: 81 MG, QD
     Route: 048
  8. AUGMENTIN                               /UNK/ [Concomitant]
     Dosage: UNK, BID
     Route: 048
  9. CALTRATE PLUS-D [Concomitant]
     Dosage: 600 MG, BID
     Route: 048
  10. CLARINEX [Concomitant]
     Dosage: 5 MG, QD
     Route: 048
  11. FINASTERIDE [Concomitant]
     Dosage: 5 MG, EACH EVENING
     Route: 048
  12. FISH OIL [Concomitant]
     Dosage: 1000 MG, EACH EVENING
     Route: 048
  13. FLUNISOLIDE [Concomitant]
     Dosage: UNK, QD
     Route: 045
  14. KEPPRA [Concomitant]
     Dosage: 500 MG, BID
     Route: 048
  15. MUCINEX [Concomitant]
     Dosage: 600 MG, BID
     Route: 048
  16. PREDNISONE [Concomitant]
     Dosage: 10 MG, TID
     Route: 048
  17. PREVACID [Concomitant]
     Dosage: 30 MG, BID
     Route: 048
  18. REMERON [Concomitant]
     Dosage: 15 MG, EACH EVENING
  19. SINGULAIR [Concomitant]
     Dosage: 10 MG, EACH EVENING
     Route: 048
  20. SPIRIVA [Concomitant]
     Dosage: 18 UG, QD
     Route: 055
  21. THEOPHYLLINE [Concomitant]
     Dosage: 400 MG, BID
     Route: 048
  22. VITAMIN D [Concomitant]
     Dosage: UNK, QD
     Route: 048
  23. ZETIA [Concomitant]
     Dosage: 5 MG, EACH EVENING
     Route: 048
  24. ZOCOR [Concomitant]
     Dosage: 80 MG, EACH EVENING

REACTIONS (2)
  - Cardiac arrest [Fatal]
  - Chronic obstructive pulmonary disease [Recovering/Resolving]
